FAERS Safety Report 9119297 (Version 1)
Quarter: 2013Q1

REPORT INFORMATION
  Report Type: Spontaneous
  Country: US (occurrence: None)
  Receive Date: 20130221
  Receipt Date: 20130221
  Transmission Date: 20140127
  Serious: Yes (Life-Threatening, Hospitalization)
  Sender: FDA-Public Use
  Company Number: None

PATIENT
  Age: 43 Year
  Sex: Female
  Weight: 52 kg

DRUGS (1)
  1. TRACLEER 125 MG [Suspect]
     Indication: PULMONARY HYPERTENSION
     Route: 048
     Dates: start: 2009

REACTIONS (6)
  - Nausea [None]
  - Vomiting [None]
  - Asthenia [None]
  - Abdominal pain [None]
  - Lethargy [None]
  - Jaundice [None]
